FAERS Safety Report 4333947-5 (Version None)
Quarter: 2004Q2

REPORT INFORMATION
  Report Type: 
  Country: None (occurrence: None)
  Receive Date: 20040402
  Receipt Date: 20040322
  Transmission Date: 20050107
  Serious: Yes (Disabling)
  Sender: FDA-Public Use
  Company Number: ZONI001343

PATIENT
  Age: 38 Year
  Sex: Female

DRUGS (6)
  1. ZONEGRAN [Suspect]
     Indication: PAIN
     Dosage: ORAL
     Route: 048
     Dates: end: 20040101
  2. ZANAFLEX [Concomitant]
  3. ELAVIL [Concomitant]
  4. MEXILETINE HCL [Concomitant]
  5. HYTRIN (TERAZOSIN) [Concomitant]
  6. ZANAFLEX [Concomitant]

REACTIONS (4)
  - FATIGUE [None]
  - GASTRITIS [None]
  - MYALGIA [None]
  - WEIGHT DECREASED [None]
